FAERS Safety Report 4703140-2 (Version None)
Quarter: 2005Q2

REPORT INFORMATION
  Report Type: 
  Country: None (occurrence: None)
  Receive Date: 20050629
  Receipt Date: 20050616
  Transmission Date: 20051028
  Serious: Yes (Hospitalization)
  Sender: FDA-Public Use
  Company Number: HCM-B05001701

PATIENT
  Age: 86 Year
  Sex: Male
  Weight: 41 kg

DRUGS (3)
  1. HYCAMTIN [Suspect]
     Indication: SMALL CELL LUNG CANCER STAGE UNSPECIFIED
     Route: 042
     Dates: start: 20030213, end: 20030322
  2. AQUPLA [Concomitant]
     Indication: DRUG USE FOR UNKNOWN INDICATION
     Dosage: 100MG PER DAY
     Route: 042
     Dates: start: 20030213, end: 20030213
  3. NEUTROGIN [Concomitant]
     Indication: NEUTROPHIL COUNT DECREASED
     Dosage: 100MG PER DAY
     Route: 058
     Dates: start: 20030225, end: 20030303

REACTIONS (9)
  - BONE MARROW DEPRESSION [None]
  - EPISTAXIS [None]
  - HAEMOGLOBIN DECREASED [None]
  - HYPOXIA [None]
  - NEUTROPHIL COUNT DECREASED [None]
  - PLATELET COUNT DECREASED [None]
  - PNEUMONIA [None]
  - PYREXIA [None]
  - WHITE BLOOD CELL COUNT DECREASED [None]
